FAERS Safety Report 6762525-3 (Version None)
Quarter: 2010Q2

REPORT INFORMATION
  Report Type: 
  Country: None (occurrence: None)
  Receive Date: 20100609
  Receipt Date: 20100531
  Transmission Date: 20101027
  Serious: Yes (Death, Hospitalization)
  Sender: FDA-Public Use
  Company Number: FR-WYE-G06201110

PATIENT
  Age: 55 Year
  Sex: Male

DRUGS (6)
  1. TAZOCILLINE [Suspect]
     Indication: PNEUMONIA
     Route: 042
     Dates: start: 20091105, end: 20091116
  2. NEXIUM [Concomitant]
     Dosage: UNKNOWN
     Dates: end: 20091116
  3. ERYTHROMYCIN [Suspect]
     Indication: PNEUMONIA
     Dosage: UNKNOWN
     Route: 042
     Dates: start: 20091107, end: 20091116
  4. TAVANIC [Concomitant]
     Indication: PNEUMONIA
     Dosage: UNKNOWN
     Dates: start: 20091105, end: 20091116
  5. BACTRIM [Suspect]
     Indication: PNEUMONIA
     Dosage: UNKNOWN
     Route: 042
     Dates: start: 20091105, end: 20091116
  6. ZYVOXID [Suspect]
     Indication: PNEUMONIA
     Dosage: UNKNOWN
     Route: 042
     Dates: start: 20091105, end: 20091116

REACTIONS (3)
  - HAEMODYNAMIC INSTABILITY [None]
  - OXYGEN SATURATION DECREASED [None]
  - STEVENS-JOHNSON SYNDROME [None]
